FAERS Safety Report 25106602 (Version 1)
Quarter: 2025Q1

REPORT INFORMATION
  Report Type: Report from Study
  Country: KR (occurrence: KR)
  Receive Date: 20250321
  Receipt Date: 20250321
  Transmission Date: 20250408
  Serious: Yes (Death)
  Sender: TAIHO ONCOLOGY INC
  Company Number: KR-JEIL-2025-652956

PATIENT
  Age: 73 Year
  Sex: Male
  Weight: 54 kg

DRUGS (11)
  1. LONSURF [Suspect]
     Active Substance: TIPIRACIL HYDROCHLORIDE\TRIFLURIDINE
     Indication: Rectal cancer
     Route: 048
     Dates: start: 20241217, end: 20241221
  2. LONSURF [Suspect]
     Active Substance: TIPIRACIL HYDROCHLORIDE\TRIFLURIDINE
     Route: 048
     Dates: start: 20241224, end: 20241228
  3. LONSURF [Suspect]
     Active Substance: TIPIRACIL HYDROCHLORIDE\TRIFLURIDINE
     Route: 048
     Dates: start: 20250118, end: 20250122
  4. LONSURF [Suspect]
     Active Substance: TIPIRACIL HYDROCHLORIDE\TRIFLURIDINE
     Route: 048
     Dates: start: 20250125, end: 20250129
  5. LONSURF [Suspect]
     Active Substance: TIPIRACIL HYDROCHLORIDE\TRIFLURIDINE
     Route: 048
     Dates: start: 20250214, end: 20250218
  6. LONSURF [Suspect]
     Active Substance: TIPIRACIL HYDROCHLORIDE\TRIFLURIDINE
     Route: 048
     Dates: start: 20250221, end: 20250225
  7. VEGZELMA [Suspect]
     Active Substance: BEVACIZUMAB-ADCD
     Indication: Rectal cancer
     Route: 042
     Dates: start: 20241217, end: 20241217
  8. VEGZELMA [Suspect]
     Active Substance: BEVACIZUMAB-ADCD
     Route: 042
     Dates: start: 20241231, end: 20241231
  9. VEGZELMA [Suspect]
     Active Substance: BEVACIZUMAB-ADCD
     Route: 042
     Dates: start: 20250118, end: 20250118
  10. VEGZELMA [Suspect]
     Active Substance: BEVACIZUMAB-ADCD
     Route: 042
     Dates: start: 20250201, end: 20250201
  11. VEGZELMA [Suspect]
     Active Substance: BEVACIZUMAB-ADCD
     Route: 042
     Dates: start: 20250214, end: 20250214

REACTIONS (1)
  - Pneumonia [Fatal]

NARRATIVE: CASE EVENT DATE: 20250311
